FAERS Safety Report 10967428 (Version 1)
Quarter: 2015Q1

REPORT INFORMATION
  Report Type: Spontaneous
  Country: US (occurrence: US)
  Receive Date: 20150330
  Receipt Date: 20150330
  Transmission Date: 20150721
  Serious: No
  Sender: FDA-Public Use
  Company Number: US-ASTRAZENECA-2014SE30427

PATIENT
  Age: 57 Year
  Sex: Female
  Weight: 45.4 kg

DRUGS (1)
  1. NEXIUM [Suspect]
     Active Substance: ESOMEPRAZOLE MAGNESIUM
     Route: 048
     Dates: start: 201307, end: 201308

REACTIONS (4)
  - Visual acuity reduced [Unknown]
  - Abdominal discomfort [Not Recovered/Not Resolved]
  - Hiatus hernia [Unknown]
  - Intentional product misuse [Unknown]
